FAERS Safety Report 15628324 (Version 1)
Quarter: 2018Q4

REPORT INFORMATION
  Report Type: Spontaneous
  Country: US (occurrence: US)
  Receive Date: 20181116
  Receipt Date: 20181116
  Transmission Date: 20190205
  Serious: No
  Sender: FDA-Public Use
  Company Number: US-SA-2018SA314931

PATIENT

DRUGS (1)
  1. MULTAQ [Suspect]
     Active Substance: DRONEDARONE
     Dosage: UNK UNK, UNK

REACTIONS (1)
  - Drug ineffective [Unknown]
